FAERS Safety Report 22178125 (Version 1)
Quarter: 2023Q2

REPORT INFORMATION
  Report Type: Spontaneous
  Country: US (occurrence: None)
  Receive Date: 20230405
  Receipt Date: 20230405
  Transmission Date: 20230722
  Serious: No
  Sender: FDA-Public Use
  Company Number: None

PATIENT
  Age: 77 Year
  Sex: Male
  Weight: 74.98 kg

DRUGS (10)
  1. DEFERASIROX [Suspect]
     Active Substance: DEFERASIROX
     Indication: Myelodysplastic syndrome with single lineage dysplasia
     Dosage: FREQUENCY : DAILY;?
     Route: 048
     Dates: start: 202207
  2. ALLOPURINOL [Concomitant]
  3. ASCORBIC ACID [Concomitant]
     Active Substance: ASCORBIC ACID
  4. CEFDINIR [Concomitant]
     Active Substance: CEFDINIR
  5. ASPIRIN [Concomitant]
  6. KEFLEX [Concomitant]
     Active Substance: CEPHALEXIN
  7. LORAZEPAM [Concomitant]
  8. METOPROLOL [Concomitant]
  9. METRONIDAZOLE [Concomitant]
     Active Substance: METRONIDAZOLE
  10. TYENOL [Concomitant]

REACTIONS (2)
  - Acute kidney injury [None]
  - Therapy interrupted [None]
